FAERS Safety Report 11857783 (Version 1)
Quarter: 2015Q4

REPORT INFORMATION
  Report Type: Spontaneous
  Country: US (occurrence: None)
  Receive Date: 20151221
  Receipt Date: 20151221
  Transmission Date: 20160305
  Serious: No
  Sender: FDA-Public Use
  Company Number: None

PATIENT
  Age: 20 Year
  Sex: Female
  Weight: 63.5 kg

DRUGS (1)
  1. ADVAIR HFA [Suspect]
     Active Substance: FLUTICASONE PROPIONATE\SALMETEROL XINAFOATE
     Indication: ASTHMA
     Route: 055
     Dates: start: 20151212, end: 20151214

REACTIONS (7)
  - Malaise [None]
  - Cough [None]
  - Insomnia [None]
  - Oropharyngeal pain [None]
  - Nasal congestion [None]
  - Feeling jittery [None]
  - Respiratory tract congestion [None]

NARRATIVE: CASE EVENT DATE: 20151214
